FAERS Safety Report 15618504 (Version 1)
Quarter: 2018Q4

REPORT INFORMATION
  Report Type: Spontaneous
  Country: US (occurrence: US)
  Receive Date: 20181114
  Receipt Date: 20181114
  Transmission Date: 20190205
  Serious: No
  Sender: FDA-Public Use
  Company Number: US-PFIZER INC-2017229248

PATIENT
  Age: 9 Year
  Sex: Male
  Weight: 24 kg

DRUGS (4)
  1. GENOTROPIN [Suspect]
     Active Substance: SOMATROPIN
     Indication: GROWTH HORMONE DEFICIENCY
     Dosage: 0.9 MG, 1X/DAY
     Dates: start: 20151008
  2. GENOTROPIN [Suspect]
     Active Substance: SOMATROPIN
     Dosage: 1.1 MG, DAILY
     Route: 058
  3. GENOTROPIN [Suspect]
     Active Substance: SOMATROPIN
     Dosage: 1.2 MG, DAILY
     Dates: start: 20160513
  4. GUANFACINE. [Concomitant]
     Active Substance: GUANFACINE
     Indication: TOURETTE^S DISORDER
     Dosage: 4 MG, 1X/DAY
     Dates: start: 201410

REACTIONS (3)
  - Device issue [Unknown]
  - Abdominal pain upper [Unknown]
  - Product dose omission [Unknown]
